FAERS Safety Report 5919099-6 (Version None)
Quarter: 2008Q4

REPORT INFORMATION
  Report Type: 
  Country: None (occurrence: None)
  Receive Date: 20081010
  Receipt Date: 20080926
  Transmission Date: 20090506
  Serious: Yes (Hospitalization)
  Sender: FDA-Public Use
  Company Number: RENA-1000261

PATIENT
  Age: 77 Year
  Sex: Female

DRUGS (4)
  1. RENAGEL [Suspect]
     Indication: HYPERCHOLESTEROLAEMIA
  2. CORDARONE [Concomitant]
  3. FOLIC ACID [Concomitant]
  4. LASIX [Concomitant]

REACTIONS (1)
  - RASH MACULO-PAPULAR [None]
